FAERS Safety Report 9338523 (Version 1)
Quarter: 2013Q2

REPORT INFORMATION
  Report Type: Spontaneous
  Country: CN (occurrence: CN)
  Receive Date: 20130610
  Receipt Date: 20130610
  Transmission Date: 20140414
  Serious: No
  Sender: FDA-Public Use
  Company Number: CN-JNJFOC-20130522575

PATIENT
  Sex: 0

DRUGS (1)
  1. DUROGESIC D-TRANS [Suspect]
     Indication: OROPHARYNGEAL PAIN
     Route: 062

REACTIONS (4)
  - Dizziness [Recovered/Resolved]
  - Wrong technique in drug usage process [Unknown]
  - Constipation [Recovered/Resolved]
  - Somnolence [Recovered/Resolved]
